FAERS Safety Report 10514596 (Version 3)
Quarter: 2014Q4

REPORT INFORMATION
  Report Type: Spontaneous
  Country: US (occurrence: US)
  Receive Date: 20141013
  Receipt Date: 20141209
  Transmission Date: 20150528
  Serious: Yes (Death)
  Sender: FDA-Public Use
  Company Number: US-PFIZER INC-2014280285

PATIENT
  Sex: Male

DRUGS (18)
  1. DIGOXIN. [Concomitant]
     Active Substance: DIGOXIN
     Dosage: 0.125 MG, ONE EVERY THIRD DAY AT LUNCH
     Dates: end: 20140807
  2. SPIRONOLACTONE. [Concomitant]
     Active Substance: SPIRONOLACTONE
     Dosage: 25 MG, ONE TABLET TWICE A DAY
     Dates: end: 20140807
  3. VITAMIN B12 [Concomitant]
     Active Substance: CYANOCOBALAMIN
     Dosage: 1000 MG, 1X/DAY
     Dates: end: 20140807
  4. LACTULOSE. [Concomitant]
     Active Substance: LACTULOSE
     Dosage: ONE TABLESPOON (15 ML), FOUR TIMES DAILY
     Dates: end: 20140807
  5. TORSEMIDE. [Concomitant]
     Active Substance: TORSEMIDE
     Dosage: 100 MG, 2X/DAY
     Dates: end: 20140807
  6. MIRTAZAPINE. [Concomitant]
     Active Substance: MIRTAZAPINE
     Dosage: 30 MG ONE BEFORE BEDTIME,UNK
     Dates: end: 20140807
  7. ULORIC [Concomitant]
     Active Substance: FEBUXOSTAT
     Dosage: 40 MG, 1X/DAY (ONE A DAY IN A.M.)
     Dates: end: 20140807
  8. REVATIO [Suspect]
     Active Substance: SILDENAFIL CITRATE
     Indication: DYSPNOEA
     Dosage: 20 MG, 3X/DAY
     Dates: end: 20140807
  9. FERROUS SULFATE [Concomitant]
     Active Substance: FERROUS SULFATE\FERROUS SULFATE, DRIED
     Dosage: 325 MG, 2X/DAY
     Dates: end: 20140807
  10. BABY ASPIRIN [Concomitant]
     Active Substance: ASPIRIN
     Dosage: 81 MG, 1X/DAY
     Dates: end: 20140807
  11. DEXILANT [Concomitant]
     Active Substance: DEXLANSOPRAZOLE
     Dosage: 60 MG, 1X/DAY
     Dates: end: 20140807
  12. FLOMAX [Concomitant]
     Active Substance: TAMSULOSIN HYDROCHLORIDE
     Dosage: 0.4 MG, ONE IN A.M. AND P.M.
     Dates: end: 20140807
  13. METOLAZONE. [Concomitant]
     Active Substance: METOLAZONE
     Dosage: 5 MG, 2X/DAY
     Dates: end: 20140807
  14. XIFAXAN [Concomitant]
     Active Substance: RIFAXIMIN
     Dosage: 550 MG, 2X/DAY
     Dates: end: 20140807
  15. METOPROLOL XL [Concomitant]
     Active Substance: METOPROLOL
     Dosage: 25 MG, 1X/DAY (ONE IN A.M.)
     Dates: end: 20140807
  16. KLOR-CON [Concomitant]
     Active Substance: POTASSIUM CHLORIDE
     Dosage: 30 MG, 2X/DAY
     Dates: end: 20140807
  17. PROCRIT [Concomitant]
     Active Substance: ERYTHROPOIETIN
     Dosage: UNK, AS NEEDED
     Dates: end: 20140807
  18. ALBUTEROL. [Concomitant]
     Active Substance: ALBUTEROL
     Dosage: 2 PUFFS AS NEEDED
     Dates: end: 20140807

REACTIONS (1)
  - Cardiac disorder [Fatal]
